FAERS Safety Report 25246864 (Version 2)
Quarter: 2025Q2

REPORT INFORMATION
  Report Type: Spontaneous
  Country: US (occurrence: US)
  Receive Date: 20250428
  Receipt Date: 20250515
  Transmission Date: 20250716
  Serious: No
  Sender: PURDUE
  Company Number: US-PURDUE PHARMA-USA-2025-0317062

PATIENT
  Sex: Male

DRUGS (1)
  1. OXYCONTIN [Suspect]
     Active Substance: OXYCODONE HYDROCHLORIDE
     Indication: Pain
     Route: 048

REACTIONS (4)
  - Intentional product use issue [Unknown]
  - Tremor [Unknown]
  - Fatigue [Unknown]
  - Insomnia [Unknown]
